FAERS Safety Report 21452960 (Version 2)
Quarter: 2022Q4

REPORT INFORMATION
  Report Type: Report from Study
  Country: CN (occurrence: None)
  Receive Date: 20221013
  Receipt Date: 20221025
  Transmission Date: 20230112
  Serious: Yes (Hospitalization)
  Sender: FDA-Public Use
  Company Number: CN-ROCHE-3197569

PATIENT
  Age: 65 Year
  Sex: Male
  Weight: 56 kg

DRUGS (8)
  1. RITUXIMAB [Suspect]
     Active Substance: RITUXIMAB
     Indication: Diffuse large B-cell lymphoma refractory
     Dosage: DOSE OF LAST RITUXIMAB ADMINISTERED PRIOR TO AE/SAE ONSET  626 MG RECEIVED ON 14/SEP/2022
     Route: 041
     Dates: start: 20220914
  2. GEMCITABINE [Suspect]
     Active Substance: GEMCITABINE
     Indication: Diffuse large B-cell lymphoma refractory
     Dosage: DATE OF MOST RECENT DOSE (1670 MG) OF GEMCITABINE PRIOR TO AE/SAE ONSET RECEIVED ON 15/SEP/2022
     Route: 042
     Dates: start: 20220915
  3. OXALIPLATIN [Suspect]
     Active Substance: OXALIPLATIN
     Indication: Diffuse large B-cell lymphoma refractory
     Dosage: DOSE (167 MG) OF LAST OXALIPLATIN ADMINISTERED PRIOR TO AE/SAE ONSET RECEIVED ON 15/SEP/2022
     Route: 042
     Dates: start: 20220915
  4. KABIVEN [Concomitant]
     Active Substance: AMINO ACIDS\ANHYDROUS DEXTROSE\CALCIUM CHLORIDE\MAGNESIUM SULFATE HEPTAHYDRATE\POTASSIUM CHLORIDE\SO
     Indication: Upper gastrointestinal haemorrhage
     Route: 042
     Dates: start: 20220920, end: 20220926
  5. COMPOUND SODIUM LACTATE SORBITOL [Concomitant]
     Indication: Upper gastrointestinal haemorrhage
     Route: 042
     Dates: start: 20220920, end: 20220926
  6. OCTREOTIDE ACETATE [Concomitant]
     Active Substance: OCTREOTIDE ACETATE
     Route: 042
     Dates: start: 20220920, end: 20220926
  7. OMEPRAZOLE [Concomitant]
     Active Substance: OMEPRAZOLE
     Route: 048
     Dates: start: 20220926, end: 20220928
  8. REBAMIPIDE [Concomitant]
     Active Substance: REBAMIPIDE
     Indication: Upper gastrointestinal haemorrhage
     Dosage: SPRAY
     Route: 048
     Dates: start: 20220926, end: 20220928

REACTIONS (1)
  - Upper gastrointestinal haemorrhage [Recovered/Resolved]

NARRATIVE: CASE EVENT DATE: 20220920
